FAERS Safety Report 10412626 (Version 1)
Quarter: 2014Q3

REPORT INFORMATION
  Report Type: Spontaneous
  Country: GB (occurrence: GB)
  Receive Date: 20140827
  Receipt Date: 20140827
  Transmission Date: 20150326
  Serious: Yes (Other)
  Sender: FDA-Public Use
  Company Number: PHHY2014GB104850

PATIENT
  Age: 38 Year
  Sex: Male
  Weight: 91.16 kg

DRUGS (2)
  1. IBUPROFEN. [Concomitant]
     Active Substance: IBUPROFEN
  2. COCODAMOL [Suspect]
     Active Substance: ACETAMINOPHEN\CODEINE PHOSPHATE
     Indication: GOUT
     Route: 048
     Dates: start: 20140808, end: 20140808

REACTIONS (5)
  - Nausea [Recovered/Resolved]
  - Dry mouth [Recovering/Resolving]
  - Constipation [Recovered/Resolved]
  - Head banging [Not Recovered/Not Resolved]
  - Abdominal pain upper [Recovering/Resolving]

NARRATIVE: CASE EVENT DATE: 20140808
